FAERS Safety Report 6984019-2 (Version None)
Quarter: 2010Q3

REPORT INFORMATION
  Report Type: 
  Country: None (occurrence: None)
  Receive Date: 20100915
  Receipt Date: 20090514
  Transmission Date: 20110219
  Serious: No
  Sender: FDA-Public Use
  Company Number: US-WYE-H09357209

PATIENT
  Age: 27 Year
  Sex: Male

DRUGS (6)
  1. PRISTIQ [Suspect]
     Indication: DEPRESSION
     Dosage: UNKNOWN
     Route: 048
     Dates: start: 20090301, end: 20090511
  2. PRISTIQ [Suspect]
     Indication: INSOMNIA
     Route: 048
     Dates: start: 20090512
  3. PAXIL [Concomitant]
  4. ATIVAN [Concomitant]
     Dosage: AS NEEDED
  5. DILAUDID [Concomitant]
  6. OPANA ER [Concomitant]

REACTIONS (7)
  - ANXIETY [None]
  - CONDITION AGGRAVATED [None]
  - DRUG INEFFECTIVE [None]
  - EUPHORIC MOOD [None]
  - INITIAL INSOMNIA [None]
  - INSOMNIA [None]
  - POOR QUALITY SLEEP [None]
